FAERS Safety Report 10062170 (Version 1)
Quarter: 2014Q2

REPORT INFORMATION
  Report Type: Spontaneous
  Country: CL (occurrence: CL)
  Receive Date: 20140407
  Receipt Date: 20140407
  Transmission Date: 20141212
  Serious: Yes (Other)
  Sender: FDA-Public Use
  Company Number: CL-PFIZER INC-2014090073

PATIENT
  Age: 90 Year
  Sex: Female

DRUGS (4)
  1. XALATAN [Suspect]
     Dosage: 1 DROP, 1X/DAY
     Dates: start: 2010
  2. NIFEDIPINE [Concomitant]
     Dosage: UNK
  3. ATENOLOL [Concomitant]
     Dosage: UNK
  4. FUROSEMIDE [Concomitant]
     Dosage: UNK

REACTIONS (1)
  - Hearing impaired [Not Recovered/Not Resolved]
